FAERS Safety Report 19380786 (Version 1)
Quarter: 2021Q2

REPORT INFORMATION
  Report Type: Spontaneous
  Country: US (occurrence: US)
  Receive Date: 20210607
  Receipt Date: 20210607
  Transmission Date: 20210717
  Serious: No
  Sender: FDA-Public Use
  Company Number: US-AMGEN-USASP2021086028

PATIENT
  Age: 77 Year
  Sex: Male

DRUGS (7)
  1. AMLODIPINE [Concomitant]
     Active Substance: AMLODIPINE BESYLATE
     Dosage: 10 MILLIGRAM
  2. METOPROLOL. [Concomitant]
     Active Substance: METOPROLOL
     Dosage: 200 MILLIGRAM
  3. SPIRONOLACTONE. [Concomitant]
     Active Substance: SPIRONOLACTONE
     Dosage: 100 MILLIGRAM
  4. METFORMIN HCL [Concomitant]
     Active Substance: METFORMIN HYDROCHLORIDE
     Dosage: 1000 MILLIGRAM
  5. ENBREL [Suspect]
     Active Substance: ETANERCEPT
     Indication: OFF LABEL USE
  6. ENBREL [Suspect]
     Active Substance: ETANERCEPT
     Indication: TRIGGER FINGER
     Dosage: 50 MILLIGRAM, QWK
     Route: 058
  7. ELIQUIS [Concomitant]
     Active Substance: APIXABAN
     Dosage: 5 MILLIGRAM

REACTIONS (2)
  - Off label use [Unknown]
  - Surgery [Unknown]
